FAERS Safety Report 18062743 (Version 3)
Quarter: 2020Q3

REPORT INFORMATION
  Report Type: Spontaneous
  Country: CA (occurrence: CA)
  Receive Date: 20200724
  Receipt Date: 20200918
  Transmission Date: 20201103
  Serious: Yes (Other)
  Sender: FDA-Public Use
  Company Number: CA-CELLTRION INC.-2020CA023646

PATIENT

DRUGS (4)
  1. INFLECTRA [Suspect]
     Active Substance: INFLIXIMAB-DYYB
     Dosage: 5 MG/KG, AT 0, 2, 6 WEEKS, THEN EVERY 8 WEEKS
     Route: 042
     Dates: start: 20200618, end: 20200618
  2. PANTOLOC [PANTOPRAZOLE] [Concomitant]
     Active Substance: PANTOPRAZOLE SODIUM
     Dosage: UNK
  3. INDOMETHACIN [INDOMETACIN] [Concomitant]
     Active Substance: INDOMETHACIN
     Dosage: UNK
  4. INFLECTRA [Suspect]
     Active Substance: INFLIXIMAB-DYYB
     Indication: ANKYLOSING SPONDYLITIS
     Dosage: 5 MG/KG, AT 0, 2, 6 WEEKS, THEN EVERY 8 WEEKS
     Route: 042
     Dates: start: 20200604, end: 20200604

REACTIONS (18)
  - Lymph node pain [Not Recovered/Not Resolved]
  - White blood cell count increased [Unknown]
  - Sinus pain [Unknown]
  - Anxiety [Recovered/Resolved]
  - Ear infection bacterial [Recovered/Resolved]
  - Throat irritation [Unknown]
  - Neck pain [Recovering/Resolving]
  - Musculoskeletal stiffness [Not Recovered/Not Resolved]
  - Pain [Unknown]
  - Anogenital warts [Unknown]
  - Dry throat [Unknown]
  - Panic attack [Recovered/Resolved]
  - Tension [Recovering/Resolving]
  - Blood pressure increased [Recovering/Resolving]
  - Ear discomfort [Unknown]
  - Palpitations [Unknown]
  - Papilloma viral infection [Unknown]
  - Paraesthesia oral [Unknown]

NARRATIVE: CASE EVENT DATE: 202006
